FAERS Safety Report 22116448 (Version 1)
Quarter: 2023Q1

REPORT INFORMATION
  Report Type: Spontaneous
  Country: FR (occurrence: FR)
  Receive Date: 20230320
  Receipt Date: 20230320
  Transmission Date: 20230417
  Serious: Yes (Hospitalization)
  Sender: FDA-Public Use
  Company Number: None

PATIENT
  Age: 39 Year
  Sex: Male
  Weight: 70 kg

DRUGS (2)
  1. SOLU-MEDROL [Suspect]
     Active Substance: METHYLPREDNISOLONE SODIUM SUCCINATE
     Indication: Alopecia universalis
     Dosage: 250 MG, 2X/DAY
     Route: 042
     Dates: start: 20221123, end: 20221125
  2. MINOXIDIL [Suspect]
     Active Substance: MINOXIDIL
     Indication: Alopecia universalis
     Dosage: UNK
     Route: 003
     Dates: start: 202210

REACTIONS (2)
  - Hepatic cytolysis [Recovering/Resolving]
  - Off label use [Unknown]

NARRATIVE: CASE EVENT DATE: 20221123
